FAERS Safety Report 10681845 (Version 1)
Quarter: 2014Q4

REPORT INFORMATION
  Report Type: Spontaneous
  Country: FR (occurrence: FR)
  Receive Date: 20141230
  Receipt Date: 20141230
  Transmission Date: 20150529
  Serious: Yes (Hospitalization)
  Sender: FDA-Public Use
  Company Number: FR-TEVA-531594ISR

PATIENT
  Age: 17 Year
  Sex: Male

DRUGS (6)
  1. PREDNISOLONE. [Suspect]
     Active Substance: PREDNISOLONE
     Dosage: SUPPOSED INGESTED DOSE: 400 MG
     Route: 048
     Dates: start: 20141126, end: 20141126
  2. PARACETAMOL [Suspect]
     Active Substance: ACETAMINOPHEN
     Dosage: SUPPOSED INGESTED DOSE: 28 G
     Route: 048
     Dates: start: 20141126, end: 20141126
  3. IBUPROFEN. [Suspect]
     Active Substance: IBUPROFEN
     Dosage: SUPPOSED INGESTED DOSE:12 G
     Route: 048
     Dates: start: 20141126, end: 20141126
  4. CODEINE [Suspect]
     Active Substance: CODEINE
     Dosage: SUPPOSED INGESTED DOSE: 720 MG
     Route: 048
     Dates: start: 20141126, end: 20141126
  5. TRIMEBUTINE [Suspect]
     Active Substance: TRIMEBUTINE
     Dosage: SUPPOSED INGESTED DOSE: 6 G
     Route: 048
     Dates: start: 20141126, end: 20141126
  6. SPASFON [Suspect]
     Active Substance: PHLOROGLUCINOL
     Dosage: SUPPOSED INGESTED DOSE: 800 MG
     Route: 048
     Dates: start: 20141126, end: 20141126

REACTIONS (2)
  - Incorrect dose administered [Unknown]
  - Vomiting [Recovered/Resolved]

NARRATIVE: CASE EVENT DATE: 20141126
